FAERS Safety Report 20169368 (Version 1)
Quarter: 2021Q4

REPORT INFORMATION
  Report Type: Spontaneous
  Country: GB (occurrence: GB)
  Receive Date: 20211210
  Receipt Date: 20211210
  Transmission Date: 20220303
  Serious: Yes (Disabling, Congenital Anomaly, Other)
  Sender: FDA-Public Use
  Company Number: GB-ABBVIE-21K-167-4191886-00

PATIENT
  Sex: Male

DRUGS (2)
  1. EPILIM [Suspect]
     Active Substance: VALPROATE SODIUM
     Indication: Epilepsy
     Route: 065
  2. EPILIM [Suspect]
     Active Substance: VALPROATE SODIUM
     Indication: Bipolar disorder

REACTIONS (2)
  - Disability [Unknown]
  - Mental disorder [Unknown]
